FAERS Safety Report 20473488 (Version 1)
Quarter: 2022Q1

REPORT INFORMATION
  Report Type: Spontaneous
  Country: UZ (occurrence: None)
  Receive Date: 20220215
  Receipt Date: 20220215
  Transmission Date: 20220423
  Serious: Yes (Death)
  Sender: FDA-Public Use
  Company Number: UZ-ROCHE-3019723

PATIENT
  Sex: Female

DRUGS (1)
  1. RISDIPLAM [Suspect]
     Active Substance: RISDIPLAM
     Indication: Product used for unknown indication
     Dosage: 0.75 MG / ML, DAILY 1 HOUR AFTER MEALS, 1 BOTTLE FOR 34 DAYS),1 BOTTLE WAS ISSUED FOR 34 DAYS
     Route: 065
     Dates: start: 20211229, end: 20220131

REACTIONS (2)
  - COVID-19 [Fatal]
  - Somnolence [Unknown]
